FAERS Safety Report 5859524-2 (Version None)
Quarter: 2008Q3

REPORT INFORMATION
  Report Type: 
  Country: None (occurrence: None)
  Receive Date: 20080827
  Receipt Date: 20080821
  Transmission Date: 20090109
  Serious: Yes (Hospitalization)
  Sender: FDA-Public Use
  Company Number: A0734604A

PATIENT
  Age: 53 Year
  Sex: Female
  Weight: 95.5 kg

DRUGS (3)
  1. AVANDIA [Suspect]
     Dosage: 4MG PER DAY
     Route: 048
     Dates: start: 20040101, end: 20060101
  2. PREDNISONE TAB [Concomitant]
  3. PLAVIX [Concomitant]

REACTIONS (6)
  - ANXIETY [None]
  - CARDIAC FAILURE CONGESTIVE [None]
  - CEREBROVASCULAR DISORDER [None]
  - HEART INJURY [None]
  - MYOCARDIAL INFARCTION [None]
  - PAIN [None]
